FAERS Safety Report 4663732-6 (Version None)
Quarter: 2005Q2

REPORT INFORMATION
  Report Type: 
  Country: None (occurrence: None)
  Receive Date: 20050516
  Receipt Date: 20050505
  Transmission Date: 20051028
  Serious: Yes (Other)
  Sender: FDA-Public Use
  Company Number: USA-2005-0020175

PATIENT
  Age: 18 Year
  Sex: Male

DRUGS (3)
  1. OXYCONTIN [Suspect]
  2. ALCOHOL (ETHANOL) [Suspect]
  3. MARIJUANA (CANNABIS) [Suspect]

REACTIONS (3)
  - INTENTIONAL MISUSE [None]
  - MURDER [None]
  - POLYSUBSTANCE ABUSE [None]
